FAERS Safety Report 23690375 (Version 1)
Quarter: 2024Q2

REPORT INFORMATION
  Report Type: Spontaneous
  Country: US (occurrence: US)
  Receive Date: 20240401
  Receipt Date: 20240401
  Transmission Date: 20240715
  Serious: No
  Sender: FDA-Public Use
  Company Number: US-TEVA-VS-3154895

PATIENT
  Age: 28 Year
  Sex: Female

DRUGS (3)
  1. UZEDY [Suspect]
     Active Substance: RISPERIDONE
     Dosage: 125/0.35 MG/ML
     Route: 065
  2. PROZAC [Concomitant]
     Active Substance: FLUOXETINE HYDROCHLORIDE
     Route: 065
  3. REMERON [Concomitant]
     Active Substance: MIRTAZAPINE
     Route: 065

REACTIONS (2)
  - Product prescribing issue [Unknown]
  - Illness [Unknown]
